FAERS Safety Report 6733832-5 (Version None)
Quarter: 2010Q2

REPORT INFORMATION
  Report Type: 
  Country: None (occurrence: None)
  Receive Date: 20100520
  Receipt Date: 20100513
  Transmission Date: 20101027
  Serious: Yes (Hospitalization)
  Sender: FDA-Public Use
  Company Number: GB-JNJCH-2010011893

PATIENT
  Sex: Male

DRUGS (3)
  1. NON DROWSY SUDAFED DECONGESTANT TABLETS [Suspect]
     Indication: NASOPHARYNGITIS
     Dosage: TEXT:UNKNOWN
     Route: 048
     Dates: start: 20100316, end: 20100318
  2. NON DROWSY SUDAFED DECONGESTANT NASAL SPRAY [Suspect]
     Indication: NASOPHARYNGITIS
     Dosage: TEXT:UNKNOWN
     Route: 045
     Dates: start: 20100316, end: 20100318
  3. SIMVASTATIN [Concomitant]
     Indication: DRUG USE FOR UNKNOWN INDICATION
     Dosage: TEXT:40MG
     Route: 048

REACTIONS (1)
  - URINARY RETENTION [None]
